FAERS Safety Report 5300563-8 (Version None)
Quarter: 2007Q2

REPORT INFORMATION
  Report Type: 
  Country: None (occurrence: None)
  Receive Date: 20070418
  Receipt Date: 20070416
  Transmission Date: 20071010
  Serious: Yes (Life-Threatening)
  Sender: FDA-Public Use
  Company Number: CA-GLAXOSMITHKLINE-A0643660A

PATIENT
  Age: 41 Year
  Sex: Male

DRUGS (2)
  1. AVANDIA [Suspect]
  2. METFORMIN HCL [Concomitant]

REACTIONS (1)
  - PANCREATIC CARCINOMA [None]
